FAERS Safety Report 7335416-7 (Version None)
Quarter: 2011Q1

REPORT INFORMATION
  Report Type: 
  Country: None (occurrence: None)
  Receive Date: 20110307
  Receipt Date: 20110222
  Transmission Date: 20110831
  Serious: Yes (Other)
  Sender: FDA-Public Use
  Company Number: PHHY2011SE15544

PATIENT
  Sex: Male

DRUGS (2)
  1. METHOTREXAT EBEWE [Suspect]
     Route: 048
     Dates: end: 20110101
  2. REMICADE [Suspect]
     Indication: RHEUMATOID ARTHRITIS
     Dates: start: 20040101, end: 20110101

REACTIONS (1)
  - SKIN CANCER [None]
